FAERS Safety Report 18638600 (Version 1)
Quarter: 2020Q4

REPORT INFORMATION
  Report Type: Report from Study
  Country: CA (occurrence: CA)
  Receive Date: 20201219
  Receipt Date: 20201219
  Transmission Date: 20210114
  Serious: Yes (Other)
  Sender: FDA-Public Use
  Company Number: CA-SHIRE-CA202019771

PATIENT
  Age: 59 Year
  Sex: Female

DRUGS (4)
  1. IMBRUVICA [Concomitant]
     Active Substance: IBRUTINIB
     Dosage: UNK
  2. VITAMINS [Concomitant]
     Active Substance: VITAMINS
     Indication: PRODUCT USED FOR UNKNOWN INDICATION
     Dosage: UNK
  3. ESCITALOPRAM [Concomitant]
     Active Substance: ESCITALOPRAM OXALATE
     Dosage: 10 MILLIGRAM, QD
  4. HUMAN NORMAL IMMUNOGLOBULIN; LIQUID 20 [Suspect]
     Active Substance: HUMAN IMMUNOGLOBULIN G
     Indication: SECONDARY IMMUNODEFICIENCY
     Dosage: 7 GRAM, 1X/WEEK
     Route: 058
     Dates: start: 20190409

REACTIONS (5)
  - Depression [Unknown]
  - COVID-19 [Unknown]
  - Fatigue [Unknown]
  - Anxiety [Unknown]
  - Parainfluenzae virus infection [Unknown]

NARRATIVE: CASE EVENT DATE: 201912
